FAERS Safety Report 4844686-6 (Version None)
Quarter: 2005Q4

REPORT INFORMATION
  Report Type: 
  Country: None (occurrence: None)
  Receive Date: 20051201
  Receipt Date: 20051201
  Transmission Date: 20060501
  Serious: Yes (Life-Threatening)
  Sender: FDA-Public Use
  Company Number: None

PATIENT
  Age: 71 Year
  Sex: Female
  Weight: 64.8 kg

DRUGS (2)
  1. VANCOMYCIN [Suspect]
     Indication: STAPHYLOCOCCAL INFECTION
     Dosage: 500MG Q24H IV
     Route: 042
     Dates: start: 20051121, end: 20051123
  2. LASIX [Suspect]
     Indication: FLUID RETENTION
     Dosage: 20MG Q24H IV
     Route: 042
     Dates: start: 20051122, end: 20051122

REACTIONS (4)
  - DRUG HYPERSENSITIVITY [None]
  - EOSINOPHILIA [None]
  - FLUID RETENTION [None]
  - LEUKOPENIA [None]
